FAERS Safety Report 6426444-4 (Version None)
Quarter: 2009Q4

REPORT INFORMATION
  Report Type: 
  Country: None (occurrence: None)
  Receive Date: 20091104
  Receipt Date: 20091028
  Transmission Date: 20100525
  Serious: Yes (Other)
  Sender: FDA-Public Use
  Company Number: PHHY2009DE47452

PATIENT
  Sex: Female
  Weight: 59 kg

DRUGS (1)
  1. SANDOSTATIN LAR [Suspect]
     Indication: PHAEOCHROMOCYTOMA MALIGNANT
     Dosage: 20 MG, QMO

REACTIONS (5)
  - ABDOMINAL PAIN [None]
  - DIARRHOEA [None]
  - GASTROINTESTINAL DISORDER [None]
  - MUSCULAR WEAKNESS [None]
  - WEIGHT DECREASED [None]
